FAERS Safety Report 8257157-4 (Version None)
Quarter: 2012Q2

REPORT INFORMATION
  Report Type: 
  Country: None (occurrence: None)
  Receive Date: 20120403
  Receipt Date: 20120326
  Transmission Date: 20120825
  Serious: Yes (Other)
  Sender: FDA-Public Use
  Company Number: FR-ABBOTT-12P-056-0895444-00

PATIENT
  Sex: Female
  Weight: 52 kg

DRUGS (7)
  1. HUMIRA [Suspect]
     Indication: SPONDYLITIS
     Route: 058
     Dates: start: 20100801
  2. NAPROXEN [Concomitant]
     Indication: SPONDYLITIS
     Route: 048
     Dates: start: 20090101
  3. TEMAZEPAM [Concomitant]
     Indication: SPONDYLITIS
     Route: 048
     Dates: start: 20090101
  4. SERC [Concomitant]
     Indication: MENIERE'S DISEASE
     Route: 048
     Dates: start: 19800101
  5. LEVOTHYROXINE SODIUM [Concomitant]
     Indication: HYPERTHYROIDISM
     Route: 048
     Dates: start: 19880101
  6. TRAMADOL HCL [Concomitant]
     Indication: SPONDYLITIS
     Route: 048
     Dates: start: 20090101
  7. RABEPRAZOLE SODIUM [Concomitant]
     Indication: PRODUCT USED FOR UNKNOWN INDICATION
     Route: 048
     Dates: start: 20100101

REACTIONS (2)
  - ACQUIRED EPIDERMOLYSIS BULLOSA [None]
  - PORPHYRIA [None]
